FAERS Safety Report 7002198-8 (Version None)
Quarter: 2010Q3

REPORT INFORMATION
  Report Type: 
  Country: None (occurrence: None)
  Receive Date: 20100920
  Receipt Date: 20100908
  Transmission Date: 20110219
  Serious: Yes (Hospitalization)
  Sender: FDA-Public Use
  Company Number: FR-PFIZER INC-2010113096

PATIENT
  Age: 22 Year
  Sex: Male

DRUGS (12)
  1. ADRIBLASTINE [Suspect]
     Indication: LYMPHOMA
     Dosage: 142.5 MG, SINGLE
     Route: 051
     Dates: start: 20100521
  2. METHOTREXATE [Suspect]
     Indication: LYMPHOMA
     Dosage: 15 MG, SINGLE
     Route: 051
     Dates: start: 20100525, end: 20100525
  3. MABTHERA [Suspect]
     Indication: LYMPHOMA
     Dosage: 712.5 MG, SINGLE
     Route: 051
     Dates: start: 20100521
  4. ENDOXAN [Suspect]
     Indication: LYMPHOMA
     Dosage: 2280 MG, SINGLE
     Route: 051
     Dates: start: 20100521
  5. ELDISINE [Suspect]
     Indication: LYMPHOMA
     Dosage: 3.8 MG, CYCLIC, ON DAY 1 AND DAY 5
     Route: 051
     Dates: start: 20100521, end: 20100525
  6. BLEOMYCIN [Suspect]
     Indication: LYMPHOMA
     Dosage: 10 MG, CYCLIC, ON DAY 1 AND DAY 5
     Route: 051
     Dates: start: 20100521, end: 20100525
  7. SOLU-MEDROL [Concomitant]
     Indication: LYMPHOMA
     Dosage: 120 MG, 1X/DAY
     Route: 051
     Dates: start: 20100521, end: 20100525
  8. TRIFLUCAN [Concomitant]
     Dosage: 100 MG, 1X/DAY
     Route: 048
     Dates: start: 20100526
  9. VALACYCLOVIR HYDROCHLORIDE [Concomitant]
     Dosage: 1 G, 1X/DAY
     Route: 048
     Dates: start: 20100526
  10. NEXIUM [Concomitant]
     Dosage: 20 MG, 1X/DAY
     Route: 048
     Dates: start: 20100526
  11. INNOHEP [Concomitant]
     Dosage: 0.6 ML, 1X/DAY
     Route: 051
     Dates: start: 20100526
  12. GRANOCYTE [Concomitant]
     Dosage: UNK
     Dates: start: 20100527, end: 20100531

REACTIONS (1)
  - FEBRILE BONE MARROW APLASIA [None]
